FAERS Safety Report 21154146 (Version 1)
Quarter: 2022Q3

REPORT INFORMATION
  Report Type: Spontaneous
  Country: None (occurrence: US)
  Receive Date: 20220801
  Receipt Date: 20220801
  Transmission Date: 20221026
  Serious: No
  Sender: FDA-Public Use
  Company Number: US-Bio Products Laboratory Ltd-2131406

PATIENT
  Age: 23 Year
  Sex: Male
  Weight: 68 kg

DRUGS (1)
  1. COAGADEX [Suspect]
     Active Substance: COAGULATION FACTOR X HUMAN
     Indication: Factor X deficiency
     Dates: start: 20160309

REACTIONS (2)
  - Epistaxis [Unknown]
  - Arthralgia [Unknown]
